FAERS Safety Report 23067339 (Version 2)
Quarter: 2023Q4

REPORT INFORMATION
  Report Type: Spontaneous
  Country: CA (occurrence: CA)
  Receive Date: 20231016
  Receipt Date: 20231207
  Transmission Date: 20240110
  Serious: Yes (Other)
  Sender: FDA-Public Use
  Company Number: CA-CELLTRION INC.-2023CA019966

PATIENT

DRUGS (4)
  1. INFLECTRA [Suspect]
     Active Substance: INFLIXIMAB-DYYB
     Indication: Uveitis
     Dosage: 300 MG, Q 0,2,6 WEEKS, THEN EVERY 8 WEEKS.
     Route: 042
     Dates: start: 20220131, end: 20230104
  2. INFLECTRA [Suspect]
     Active Substance: INFLIXIMAB-DYYB
     Dosage: 300 MG, EVERY 6 WEEKS
     Route: 042
     Dates: start: 20230215
  3. DUREZOL [Concomitant]
     Active Substance: DIFLUPREDNATE
     Dosage: 1 DF, 4X/DAY
     Route: 047
  4. METHOTREXATE [Concomitant]
     Active Substance: METHOTREXATE
     Dosage: 25 MG, WEEKLY
     Route: 048

REACTIONS (2)
  - Wound infection [Unknown]
  - Wound [Unknown]

NARRATIVE: CASE EVENT DATE: 20230101
